FAERS Safety Report 16212104 (Version 2)
Quarter: 2019Q3

REPORT INFORMATION
  Report Type: Spontaneous
  Country: US (occurrence: US)
  Receive Date: 20190418
  Receipt Date: 20190702
  Transmission Date: 20191004
  Serious: Yes (Other)
  Sender: FDA-Public Use
  Company Number: US-TEVA-2019-US-1040141

PATIENT
  Sex: Female

DRUGS (2)
  1. AJOVY [Suspect]
     Active Substance: FREMANEZUMAB-VFRM
     Indication: MIGRAINE
     Dosage: 225 MILLIGRAMS
     Route: 058
     Dates: start: 20190201
  2. MAGNESIUM [Concomitant]
     Active Substance: MAGNESIUM

REACTIONS (6)
  - Pruritus generalised [Unknown]
  - Heart rate increased [Unknown]
  - Chest pain [Not Recovered/Not Resolved]
  - Migraine-triggered seizure [Unknown]
  - Fatigue [Not Recovered/Not Resolved]
  - Hemiplegic migraine [Unknown]

NARRATIVE: CASE EVENT DATE: 201902
